FAERS Safety Report 4654399-1 (Version None)
Quarter: 2005Q2

REPORT INFORMATION
  Report Type: 
  Country: None (occurrence: None)
  Receive Date: 20050504
  Receipt Date: 20050421
  Transmission Date: 20051028
  Serious: Yes (Hospitalization)
  Sender: FDA-Public Use
  Company Number: 2005066658

PATIENT
  Age: 38 Year
  Sex: Male

DRUGS (2)
  1. ZIPRASIDONE (CAPS) (ZIPRASIDONE) [Suspect]
     Indication: ILL-DEFINED DISORDER
     Dosage: 40 MG (2 IN 1 D)
  2. FLUPHENAZINE [Suspect]
     Indication: ILL-DEFINED DISORDER
     Dosage: 1 IN 2 WK

REACTIONS (10)
  - AGGRESSION [None]
  - AKATHISIA [None]
  - ANOREXIA [None]
  - FEELING ABNORMAL [None]
  - HALLUCINATION, AUDITORY [None]
  - INSOMNIA [None]
  - IRRITABILITY [None]
  - MANIA [None]
  - PSYCHOMOTOR HYPERACTIVITY [None]
  - TREMOR [None]
